FAERS Safety Report 9357592 (Version 1)
Quarter: 2013Q2

REPORT INFORMATION
  Report Type: Spontaneous
  Country: US (occurrence: US)
  Receive Date: 20130620
  Receipt Date: 20130620
  Transmission Date: 20140414
  Serious: Yes (Other)
  Sender: FDA-Public Use
  Company Number: US-BAYER-2013-075254

PATIENT
  Age: 33 Year
  Sex: Female
  Weight: 102 kg

DRUGS (4)
  1. YAZ [Suspect]
  2. LISINOPRIL [Concomitant]
  3. POTASSIUM [Concomitant]
     Indication: PAIN IN EXTREMITY
  4. FENOFIBRATE [Concomitant]

REACTIONS (1)
  - Deep vein thrombosis [None]
